FAERS Safety Report 20578700 (Version 1)
Quarter: 2022Q1

REPORT INFORMATION
  Report Type: Spontaneous
  Country: NO (occurrence: NO)
  Receive Date: 20220310
  Receipt Date: 20220310
  Transmission Date: 20220423
  Serious: Yes (Hospitalization, Other)
  Sender: FDA-Public Use
  Company Number: 22_00017727(0)

PATIENT
  Age: 16 Year
  Sex: Male

DRUGS (15)
  1. DEXMEDETOMIDINE HYDROCHLORIDE [Suspect]
     Active Substance: DEXMEDETOMIDINE HYDROCHLORIDE
     Indication: Premedication
     Dosage: 90 MICROGRAM, 1 TOTAL
     Route: 045
     Dates: start: 20220208, end: 20220208
  2. THIOPENTAL [Suspect]
     Active Substance: THIOPENTAL
     Indication: Computerised tomogram
     Dosage: UNK
     Route: 042
     Dates: start: 20220208, end: 20220208
  3. TRYPAN BLUE [Suspect]
     Active Substance: TRYPAN BLUE
     Indication: Computerised tomogram
     Dosage: UNK
     Route: 065
  4. ORAMORPH SR SUSTAINED RELEASE [Suspect]
     Active Substance: MORPHINE SULFATE
     Indication: Pain prophylaxis
     Dosage: 10 MILLIGRAM UP TO, TID, PRN, 10 MG ADMINISTERED 09:40 AND 12:30 (20 MG)
     Route: 048
     Dates: start: 20220207
  5. CLOBAZAM [Suspect]
     Active Substance: CLOBAZAM
     Indication: Epilepsy
     Dosage: 10 MG MORNING, 20 MG EVENING
     Route: 048
  6. MIDAZOLAM [Suspect]
     Active Substance: MIDAZOLAM
     Indication: Premedication
     Dosage: GIVEN AT 13:00, STRENGTH 2 MG/ML (20 MG, 1 TOTAL)
     Route: 048
     Dates: start: 20220208, end: 20220208
  7. ACETAMINOPHEN [Concomitant]
     Active Substance: ACETAMINOPHEN
     Indication: Product used for unknown indication
     Dosage: STRENGTH 500 MG, 750 MG UP TO, QID
     Route: 048
  8. MELATONIN ORIFARM [Concomitant]
     Indication: Sleep disorder
     Dosage: STRENGTH 2 MILLIGRAM, ADMINISTERED IN EVENING (2 MG, 24 HR)
     Route: 048
  9. POLYETHYLENE GLYCOL 3350\POTASSIUM CHLORIDE\SODIUM BICARBONATE\SODIUM [Concomitant]
     Active Substance: POLYETHYLENE GLYCOL 3350\POTASSIUM CHLORIDE\SODIUM BICARBONATE\SODIUM CHLORIDE
     Indication: Product used for unknown indication
     Dosage: 1.5 SACHETS MORNING (1.5 DOSAGE FORM, 24 HR)
     Route: 048
  10. ESLICARBAZEPINE ACETATE [Concomitant]
     Active Substance: ESLICARBAZEPINE ACETATE
     Indication: Product used for unknown indication
     Dosage: STRENGTH 800 MILLIGRAM, EVENING. (1200 MG, 24 HR)
     Route: 048
  11. NEXIUM SANDOZ [Concomitant]
     Indication: Product used for unknown indication
     Dosage: STRENGTH 20 MILLIGRAM (20 MG, 12 HR)
     Route: 048
  12. MIANSERIN [Concomitant]
     Active Substance: MIANSERIN
     Indication: Product used for unknown indication
     Dosage: STRENGTH 30 MILLIGRAM IN EVENING (30 MG, 24 HR)
     Route: 048
  13. TRIMEPRAZINE TARTRATE [Concomitant]
     Active Substance: TRIMEPRAZINE TARTRATE
     Indication: Product used for unknown indication
     Dosage: STRENGTH 40 MG/ML, EVENING (12 MG, 24 HR)
     Route: 048
  14. IBUPROFEN [Concomitant]
     Active Substance: IBUPROFEN
     Indication: Product used for unknown indication
     Dosage: STRENGTH 400 MG, 500 MG UP TO, QID
     Route: 048
  15. ZOFRAN [Concomitant]
     Active Substance: ONDANSETRON HYDROCHLORIDE
     Indication: Product used for unknown indication
     Dosage: STRENGTH 0.8 MG/ML, 6 MG UP TO, TID
     Route: 048

REACTIONS (4)
  - Drug interaction [Recovering/Resolving]
  - Respiratory depression [Recovering/Resolving]
  - Product administered to patient of inappropriate age [Unknown]
  - Product use issue [Unknown]

NARRATIVE: CASE EVENT DATE: 20220208
